FAERS Safety Report 12861893 (Version 2)
Quarter: 2016Q4

REPORT INFORMATION
  Report Type: Spontaneous
  Country: TW (occurrence: TW)
  Receive Date: 20161019
  Receipt Date: 20161028
  Transmission Date: 20170207
  Serious: Yes (Other)
  Sender: FDA-Public Use
  Company Number: TW-PFIZER INC-2016481598

PATIENT
  Age: 43 Year
  Sex: Female

DRUGS (2)
  1. DOSTINEX [Suspect]
     Active Substance: CABERGOLINE
     Indication: HYPERPROLACTINAEMIA
     Dosage: 1 DF, WEEKLY
     Route: 048
  2. DOSTINEX [Suspect]
     Active Substance: CABERGOLINE
     Dosage: 2 DF, WEEKLY
     Route: 048

REACTIONS (1)
  - Haemorrhage in pregnancy [Recovered/Resolved]
